FAERS Safety Report 4447773-X (Version None)
Quarter: 2004Q3

REPORT INFORMATION
  Report Type: 
  Country: None (occurrence: None)
  Receive Date: 20040913
  Receipt Date: 20040526
  Transmission Date: 20050211
  Serious: Yes (Death)
  Sender: FDA-Public Use
  Company Number: 200414090US

PATIENT
  Age: 62 Year
  Sex: Male

DRUGS (9)
  1. LOVENOX [Suspect]
     Indication: DEEP VEIN THROMBOSIS
     Route: 058
  2. IMMUNE GLOBULIN (HUMAN) [Concomitant]
  3. PROCARDIA XL [Concomitant]
     Route: 048
  4. GLYBURIDE [Concomitant]
  5. GLUCOPHAGE [Concomitant]
  6. COZAAR [Concomitant]
  7. DARVOCET-N 100 [Concomitant]
  8. AMBIEN [Concomitant]
  9. COLACE [Concomitant]
     Route: 048

REACTIONS (5)
  - APNOEA [None]
  - CARDIO-RESPIRATORY ARREST [None]
  - HYPOTENSION [None]
  - METABOLIC ACIDOSIS [None]
  - RETROPERITONEAL HAEMORRHAGE [None]
